FAERS Safety Report 4918705-2 (Version None)
Quarter: 2006Q1

REPORT INFORMATION
  Report Type: 
  Country: None (occurrence: None)
  Receive Date: 20060221
  Receipt Date: 20060221
  Transmission Date: 20060701
  Serious: Yes (Other)
  Sender: FDA-Public Use
  Company Number: None

PATIENT
  Sex: Female
  Weight: 68.4932 kg

DRUGS (2)
  1. FLUTICASONE PROPIONATE [Suspect]
     Indication: RHINITIS ALLERGIC
     Dosage: 2 SPRAYS EA NOSTRIL QD
     Route: 045
     Dates: start: 20060117, end: 20060120
  2. CLARITIN [Concomitant]

REACTIONS (1)
  - DRUG INEFFECTIVE [None]
